FAERS Safety Report 9693109 (Version 3)
Quarter: 2013Q4

REPORT INFORMATION
  Report Type: Spontaneous
  Country: GB (occurrence: GB)
  Receive Date: 20131118
  Receipt Date: 20131125
  Transmission Date: 20140711
  Serious: Yes (Other)
  Sender: FDA-Public Use
  Company Number: GB-ELI_LILLY_AND_COMPANY-GB201310006040

PATIENT
  Age: 32 Year
  Sex: Female

DRUGS (4)
  1. STRATTERA [Suspect]
     Indication: ATTENTION DEFICIT/HYPERACTIVITY DISORDER
     Dosage: 25 MG, UNKNOWN
     Route: 065
  2. STRATTERA [Suspect]
     Dosage: 40 MG, UNKNOWN
     Route: 065
  3. STRATTERA [Suspect]
     Dosage: 60 MG, UNKNOWN
     Route: 065
  4. STRATTERA [Suspect]
     Dosage: 40 MG, QD
     Route: 065

REACTIONS (6)
  - Ocular hyperaemia [Recovering/Resolving]
  - Visual acuity reduced [Recovering/Resolving]
  - Memory impairment [Recovering/Resolving]
  - Weight increased [Recovering/Resolving]
  - Anxiety [Recovering/Resolving]
  - Constipation [Recovering/Resolving]
